FAERS Safety Report 11166228 (Version 1)
Quarter: 2015Q2

REPORT INFORMATION
  Report Type: Spontaneous
  Country: GB (occurrence: GB)
  Receive Date: 20150605
  Receipt Date: 20150605
  Transmission Date: 20150821
  Serious: Yes (Hospitalization, Disabling)
  Sender: FDA-Public Use
  Company Number: GB-009507513-1506GBR002356

PATIENT
  Age: 68 Year
  Sex: Female
  Weight: 66 kg

DRUGS (4)
  1. ALENDRONATE SODIUM. [Suspect]
     Active Substance: ALENDRONATE SODIUM
     Indication: OSTEOPOROTIC FRACTURE
     Route: 048
  2. ACCRETE D3 [Concomitant]
  3. IBANDRONATE SODIUM. [Suspect]
     Active Substance: IBANDRONATE SODIUM
     Indication: OSTEOPOROTIC FRACTURE
     Dosage: UNK
     Route: 048
     Dates: start: 20030101, end: 20130501
  4. PANTOPRAZOLE [Concomitant]
     Active Substance: PANTOPRAZOLE SODIUM

REACTIONS (3)
  - Femur fracture [Recovering/Resolving]
  - Stress fracture [Unknown]
  - Pain in extremity [Unknown]

NARRATIVE: CASE EVENT DATE: 20130501
